FAERS Safety Report 6080174-X (Version None)
Quarter: 2009Q1

REPORT INFORMATION
  Report Type: 
  Country: None (occurrence: None)
  Receive Date: 20090217
  Receipt Date: 20090206
  Transmission Date: 20090719
  Serious: Yes (Hospitalization, Other)
  Sender: FDA-Public Use
  Company Number: DE-BAXTER-2009BH002134

PATIENT
  Age: 41 Year
  Sex: Female
  Weight: 75 kg

DRUGS (7)
  1. CYCLOPHOSPHAMIDE [Suspect]
     Indication: BREAST CANCER
     Route: 065
     Dates: start: 20080613, end: 20080725
  2. PACLITAXEL [Suspect]
     Indication: BREAST CANCER
     Route: 065
     Dates: start: 20080808, end: 20081024
  3. EPIRUBICIN [Suspect]
     Indication: BREAST CANCER
     Route: 065
     Dates: start: 20080613, end: 20080725
  4. CAPECITABINE [Suspect]
     Indication: BREAST CANCER
     Route: 065
     Dates: start: 20080813, end: 20081027
  5. DEXAMETHASONE [Suspect]
     Indication: BREAST CANCER
     Route: 065
     Dates: start: 20080613, end: 20081024
  6. CLEMASTINE FUMARATE [Concomitant]
  7. ONDANSETRON [Concomitant]

REACTIONS (2)
  - DIABETES MELLITUS [None]
  - TYPE 2 DIABETES MELLITUS [None]
